FAERS Safety Report 6827905-6 (Version None)
Quarter: 2010Q3

REPORT INFORMATION
  Report Type: 
  Country: None (occurrence: None)
  Receive Date: 20100709
  Receipt Date: 20100701
  Transmission Date: 20110219
  Serious: Yes (Death)
  Sender: FDA-Public Use
  Company Number: A0868170A

PATIENT
  Age: 55 Year
  Sex: Male

DRUGS (2)
  1. ZOFRAN [Suspect]
     Dosage: 8MG FOUR TIMES PER DAY
     Route: 048
     Dates: start: 20090801, end: 20100101
  2. NO CONCURRENT MEDICATION [Concomitant]

REACTIONS (1)
  - DEATH [None]
